FAERS Safety Report 4347208-1 (Version None)
Quarter: 2004Q1

REPORT INFORMATION
  Report Type: 
  Country: None (occurrence: None)
  Receive Date: 20040325
  Receipt Date: 20040129
  Transmission Date: 20041129
  Serious: No
  Sender: FDA-Public Use
  Company Number: USA031255476

PATIENT
  Age: 79 Year
  Sex: Female
  Weight: 41 kg

DRUGS (1)
  1. FORTEO [Suspect]
     Indication: OSTEOPOROSIS
     Dosage: 20 UG/DAY
     Dates: start: 20031101, end: 20040121

REACTIONS (5)
  - CONSTIPATION [None]
  - FATIGUE [None]
  - HAEMORRHOIDS [None]
  - HYPOACUSIS [None]
  - LETHARGY [None]
